FAERS Safety Report 21072499 (Version 1)
Quarter: 2022Q3

REPORT INFORMATION
  Report Type: Spontaneous
  Country: None (occurrence: US)
  Receive Date: 20220712
  Receipt Date: 20220712
  Transmission Date: 20221027
  Serious: Yes (Other)
  Sender: FDA-Public Use
  Company Number: US-Breckenridge Pharmaceutical, Inc.-2130798

PATIENT
  Age: 35 Year
  Sex: Male
  Weight: 100 kg

DRUGS (1)
  1. DULOXETINE [Suspect]
     Active Substance: DULOXETINE
     Indication: Depression
     Route: 048

REACTIONS (13)
  - Emotional poverty [Unknown]
  - Pyrexia [Unknown]
  - Male sexual dysfunction [Unknown]
  - Weaning failure [Unknown]
  - Inappropriate schedule of product discontinuation [Unknown]
  - Antidepressant discontinuation syndrome [Unknown]
  - Anger [Unknown]
  - Anxiety [Unknown]
  - Depression [Unknown]
  - Suicidal ideation [Unknown]
  - Abdominal discomfort [Unknown]
  - Irritable bowel syndrome [Unknown]
  - Obsessive thoughts [Unknown]
